FAERS Safety Report 12213630 (Version 1)
Quarter: 2016Q1

REPORT INFORMATION
  Report Type: Spontaneous
  Country: TH (occurrence: TH)
  Receive Date: 20160328
  Receipt Date: 20160328
  Transmission Date: 20160526
  Serious: Yes (Hospitalization)
  Sender: FDA-Public Use
  Company Number: TH-SA-2016SA058268

PATIENT
  Age: 67 Year
  Sex: Female
  Weight: 65 kg

DRUGS (6)
  1. ALBENDAZOLE [Concomitant]
     Active Substance: ALBENDAZOLE
     Indication: APLASTIC ANAEMIA
     Route: 048
     Dates: start: 20151205, end: 20151212
  2. VITAMIN B COMPLEX [Concomitant]
     Active Substance: CYANOCOBALAMIN\DEXPANTHENOL\NIACINAMIDE\PYRIDOXINE HYDROCHLORIDE\RIBOFLAVIN 5^-PHOSPHATE SODIUM\THIAMINE HYDROCHLORIDE\VITAMIN B COMPLEX
     Indication: APLASTIC ANAEMIA
     Route: 048
     Dates: start: 20151205
  3. THYMOGLOBULIN [Suspect]
     Active Substance: LAPINE T-LYMPHOCYTE IMMUNE GLOBULIN
     Indication: APLASTIC ANAEMIA
     Route: 042
     Dates: start: 20151205, end: 20151212
  4. CYCLOSPORIN [Suspect]
     Active Substance: CYCLOSPORINE
     Indication: APLASTIC ANAEMIA
     Route: 048
     Dates: start: 20151205, end: 20151212
  5. FOLIC ACID. [Concomitant]
     Active Substance: FOLIC ACID
     Indication: APLASTIC ANAEMIA
     Route: 048
     Dates: start: 20151205
  6. OMEPRAZOLE. [Concomitant]
     Active Substance: OMEPRAZOLE
     Indication: APLASTIC ANAEMIA
     Route: 048
     Dates: start: 20151205

REACTIONS (3)
  - Atrial fibrillation [Recovered/Resolved]
  - Pyomyositis [Recovering/Resolving]
  - Hypertension [Recovering/Resolving]

NARRATIVE: CASE EVENT DATE: 20151211
